FAERS Safety Report 4886750-1 (Version None)
Quarter: 2006Q1

REPORT INFORMATION
  Report Type: 
  Country: None (occurrence: None)
  Receive Date: 20060120
  Receipt Date: 20060113
  Transmission Date: 20060701
  Serious: Yes (Hospitalization)
  Sender: FDA-Public Use
  Company Number: US-ROCHE-431826

PATIENT
  Age: 50 Year
  Sex: Male
  Weight: 88.9 kg

DRUGS (7)
  1. PEG-INTERFERON ALFA 2A (RO 25-8310) [Suspect]
     Route: 058
     Dates: start: 20030117, end: 20060109
  2. RIBAVIRIN [Suspect]
     Route: 048
     Dates: start: 20030116
  3. LASIX [Concomitant]
     Dates: start: 20051231
  4. ALDACTONE [Concomitant]
     Dates: start: 20051231
  5. AMBIEN [Concomitant]
     Dates: start: 20050920
  6. VITAMIN A [Concomitant]
     Dates: start: 20051215, end: 20051230
  7. NADOLOL [Concomitant]
     Dates: start: 20051231

REACTIONS (2)
  - ENCEPHALOPATHY [None]
  - HYPERSOMNIA [None]
